FAERS Safety Report 7569960-4 (Version None)
Quarter: 2011Q2

REPORT INFORMATION
  Report Type: 
  Country: None (occurrence: None)
  Receive Date: 20110622
  Receipt Date: 20110622
  Transmission Date: 20111010
  Serious: Yes (Other)
  Sender: FDA-Public Use
  Company Number: None

PATIENT
  Age: 52 Year
  Sex: Female
  Weight: 58.9676 kg

DRUGS (1)
  1. PRAMIPEXOLE DIHYDROCHLORIDE [Suspect]
     Indication: RESTLESS LEGS SYNDROME
     Dosage: 1 TABLET ONCE A DAY PO ONCE
     Route: 048
     Dates: start: 20110620, end: 20110620

REACTIONS (11)
  - FATIGUE [None]
  - NASAL CONGESTION [None]
  - PHARYNGEAL OEDEMA [None]
  - ANXIETY [None]
  - OBSTRUCTIVE AIRWAYS DISORDER [None]
  - VOMITING [None]
  - PANIC REACTION [None]
  - CLAUSTROPHOBIA [None]
  - FEELING HOT [None]
  - HEADACHE [None]
  - ERYTHEMA [None]
